FAERS Safety Report 8087296-2 (Version None)
Quarter: 2012Q1

REPORT INFORMATION
  Report Type: 
  Country: None (occurrence: None)
  Receive Date: 20120128
  Receipt Date: 20110516
  Transmission Date: 20120608
  Serious: No
  Sender: FDA-Public Use
  Company Number: US-ABBOTT-11P-163-0726004-00

PATIENT
  Age: 50 Year
  Sex: Male

DRUGS (5)
  1. HUMIRA [Suspect]
     Indication: PSORIATIC ARTHROPATHY
     Dates: start: 20110501
  2. UNKNOWN MEDICATION [Concomitant]
     Indication: THYROID DISORDER
  3. HUMIRA [Suspect]
  4. INSULIN [Concomitant]
     Indication: PRODUCT USED FOR UNKNOWN INDICATION
     Dosage: ON A REGULAR SCHEDULE
  5. UNKNOWN MEDICATION [Concomitant]
     Indication: ASTHMA

REACTIONS (2)
  - INJECTION SITE PAIN [None]
  - PAIN [None]
